FAERS Safety Report 8911755 (Version 2)
Quarter: 2013Q3

REPORT INFORMATION
  Report Type: Spontaneous
  Country: US (occurrence: US)
  Receive Date: 20121116
  Receipt Date: 20130905
  Transmission Date: 20140515
  Serious: Yes (Hospitalization)
  Sender: FDA-Public Use
  Company Number: US-AMGEN-USASP2012073120

PATIENT
  Age: 58 Year
  Sex: Female
  Weight: 101.59 kg

DRUGS (26)
  1. ENBREL [Suspect]
     Indication: SPONDYLOARTHROPATHY
     Dosage: UNK
     Route: 065
  2. HUMIRA [Concomitant]
     Dosage: 40 MG, QWK
     Route: 058
  3. SULFASALAZINE [Concomitant]
     Dosage: UNK
  4. METHOTREXATE [Concomitant]
     Dosage: 15 MG, QWK
  5. MOBIC [Concomitant]
     Dosage: 7.5 MG, QD
  6. LYRICA [Concomitant]
     Indication: FIBROMYALGIA
     Dosage: 75 MG, BID
  7. CALCIUM [Concomitant]
     Indication: OSTEOPENIA
     Dosage: UNK
  8. VITAMIN D                          /00107901/ [Concomitant]
     Indication: OSTEOPENIA
     Dosage: 50000 IU, QWK
  9. FLEXERIL                           /00428402/ [Concomitant]
     Indication: NECK PAIN
     Dosage: 10 MG, 1TABLETUNK
  10. FLEXERIL                           /00428402/ [Concomitant]
     Indication: FIBROMYALGIA
  11. IMITREX                            /01044801/ [Concomitant]
     Indication: MIGRAINE
     Dosage: UNK
  12. TYLENOL                            /00020001/ [Concomitant]
     Dosage: 650 MG, 2 TABLETS PRN, UNK
  13. KEPRA [Concomitant]
     Dosage: 250 MG, QD
  14. MELOXICAM [Concomitant]
     Dosage: 7.5 MG, UNK
  15. EFFEXOR XR [Concomitant]
     Indication: DEPRESSION
     Dosage: 150 MG, BID
     Route: 048
  16. CYCLOBENZAPRINE HYDROCHLORIDE [Concomitant]
     Indication: SPONDYLOARTHROPATHY
     Dosage: 10 MG AT NIGHT PRN, UNK
  17. NORCO [Concomitant]
     Indication: SPONDYLOARTHROPATHY
     Dosage: 325 MG-5 MG TABLET 1 TAB EVERY 8 HRS PRN, UNK
  18. ZOLPIDEM TARTRATE [Concomitant]
     Dosage: 10 MG, QD
  19. PNEUMOCOCCAL VACCINES [Concomitant]
     Dosage: UNK
     Dates: start: 200612
  20. PNEUMOCOCCAL VACCINES [Concomitant]
     Dosage: UNK
     Dates: start: 201202
  21. INFLUENZA [Concomitant]
     Dosage: UNK
     Dates: start: 2010
  22. INFLUENZA [Concomitant]
     Dosage: UNK
     Dates: start: 2011
  23. INFLUENZA [Concomitant]
     Dosage: UNK
     Dates: start: 201210
  24. VIMOVO [Concomitant]
     Dosage: 20 MG-500 MG, 1 TABLET ONCE A DAY
  25. BUSPAR [Concomitant]
     Indication: DEPRESSION
     Dosage: 10 MG, AS NECESSARY
  26. BUSPAR [Concomitant]
     Indication: POST-TRAUMATIC STRESS DISORDER

REACTIONS (33)
  - Herpes simplex meningoencephalitis [Unknown]
  - Tenosynovitis stenosans [Unknown]
  - Post-traumatic stress disorder [Unknown]
  - Seronegative arthritis [Unknown]
  - Osteopenia [Unknown]
  - Arthralgia [Unknown]
  - Pain [Unknown]
  - Musculoskeletal stiffness [Unknown]
  - Depression [Unknown]
  - Fatigue [Unknown]
  - Fall [Unknown]
  - Joint injury [Unknown]
  - Neck pain [Unknown]
  - Joint swelling [Unknown]
  - Muscular weakness [Unknown]
  - Dry eye [Unknown]
  - Photosensitivity reaction [Unknown]
  - Insomnia [Unknown]
  - Dyspepsia [Unknown]
  - Headache [Unknown]
  - Spondyloarthropathy [Unknown]
  - Leukocytosis [Recovered/Resolved]
  - Red blood cell sedimentation rate increased [Unknown]
  - Sinus headache [Unknown]
  - Oral pain [Unknown]
  - Pain in extremity [Unknown]
  - Malaise [Unknown]
  - Myalgia [Unknown]
  - Asthenia [Unknown]
  - Night sweats [Unknown]
  - Weight increased [Unknown]
  - Dry mouth [Unknown]
  - Therapeutic response decreased [Unknown]
